FAERS Safety Report 16939233 (Version 4)
Quarter: 2019Q4

REPORT INFORMATION
  Report Type: Report from Study
  Country: FR (occurrence: FR)
  Receive Date: 20191021
  Receipt Date: 20191203
  Transmission Date: 20200122
  Serious: Yes (Hospitalization)
  Sender: FDA-Public Use
  Company Number: FR-ROCHE-2445028

PATIENT
  Age: 73 Year
  Sex: Male
  Weight: 78 kg

DRUGS (25)
  1. BEVACIZUMAB. [Suspect]
     Active Substance: BEVACIZUMAB
     Indication: HEPATOCELLULAR CARCINOMA
     Dosage: DATE OF MOST RECENT DOSE OF BEVACIZUMAB (1245 MG) PRIOR TO SAE ONSET: 29/AUG/2019
     Route: 042
     Dates: start: 20181220
  2. ALBUMINE [Concomitant]
     Active Substance: ALBUMIN HUMAN
     Indication: HEPATORENAL SYNDROME
     Route: 065
     Dates: start: 20191017
  3. PRIMPERAN [Concomitant]
     Active Substance: METOCLOPRAMIDE HYDROCHLORIDE
     Indication: NAUSEA
     Route: 065
     Dates: start: 20191015
  4. RINGER LACTATED [Concomitant]
     Dosage: FOR HYDRATATION
     Route: 065
     Dates: start: 20191015, end: 20191016
  5. METRONIDAZOLE. [Concomitant]
     Active Substance: METRONIDAZOLE
     Indication: SEPSIS
     Dosage: FOR SEPSIS ON PANCREATITIS
     Route: 065
     Dates: start: 20191016, end: 20191017
  6. EXCIPIAL HYDRO [Concomitant]
     Indication: URTICARIA
     Route: 065
     Dates: start: 20190128
  7. PANTOPRAZOLE [Concomitant]
     Active Substance: PANTOPRAZOLE
     Indication: ABDOMINAL PAIN UPPER
     Route: 065
     Dates: start: 20191015, end: 20191017
  8. RESIKALI [Concomitant]
     Active Substance: CALCIUM POLYSTYRENE SULFONATE
     Indication: HYPERKALAEMIA
     Route: 065
     Dates: start: 20191017, end: 20191017
  9. TRAMADOL. [Concomitant]
     Active Substance: TRAMADOL
     Indication: PAIN
     Route: 065
     Dates: start: 20191017, end: 20191017
  10. GLYCERINE [Concomitant]
     Active Substance: GLYCERIN
     Indication: URTICARIA
     Route: 065
     Dates: start: 20190128
  11. PARACETAMOL [Concomitant]
     Active Substance: ACETAMINOPHEN
     Indication: PAIN
     Route: 065
     Dates: start: 20191015, end: 20191017
  12. MORPHINE [Concomitant]
     Active Substance: MORPHINE
     Indication: PAIN
     Route: 065
     Dates: start: 20191017
  13. ALDACTONE [Concomitant]
     Active Substance: SPIRONOLACTONE
     Indication: PERIPHERAL SWELLING
     Route: 065
     Dates: start: 20190920, end: 20191004
  14. IXPRIM [Concomitant]
     Active Substance: ACETAMINOPHEN\TRAMADOL HYDROCHLORIDE
     Indication: MUSCULOSKELETAL CHEST PAIN
     Route: 065
     Dates: start: 20190921, end: 20190925
  15. ACUPAN [Concomitant]
     Active Substance: NEFOPAM HYDROCHLORIDE
     Indication: PAIN
     Route: 065
     Dates: start: 20191015, end: 20191017
  16. PIPERACILLIN AND TAZOBACTAM [Concomitant]
     Active Substance: PIPERACILLIN SODIUM\TAZOBACTAM SODIUM
     Indication: SEPSIS
     Dosage: FOR SEPSIS ON PANCREATITIS
     Route: 065
     Dates: start: 20191017
  17. ATEZOLIZUMAB. [Suspect]
     Active Substance: ATEZOLIZUMAB
     Indication: HEPATOCELLULAR CARCINOMA
     Dosage: DATE OF MOST RECENT DOSE OF ATEZOLIZUMAB (1200 MG) PRIOR TO SAE ONSET: 29/AUG/2019
     Route: 042
     Dates: start: 20181220
  18. LASILIX [FUROSEMIDE] [Concomitant]
     Active Substance: FUROSEMIDE
     Indication: ASCITES
     Route: 065
     Dates: start: 20190808
  19. LASILIX [FUROSEMIDE] [Concomitant]
     Active Substance: FUROSEMIDE
     Indication: PERIPHERAL SWELLING
  20. TERLIPRESSIN ACETATE [Concomitant]
     Active Substance: TERLIPRESSIN
     Indication: HEPATORENAL SYNDROME
     Route: 065
     Dates: start: 20191017
  21. GLYCOPYRRONIUM BROMIDE;INDACATEROL MALEATE [Concomitant]
     Active Substance: GLYCOPYRROLATE\INDACATEROL MALEATE
     Indication: EMPHYSEMA
     Route: 065
     Dates: start: 201703
  22. DEXERYL [GLYCEROL;PARAFFIN, LIQUID;WHITE SOFT PARAFFIN] [Concomitant]
     Active Substance: GLYCERIN\MINERAL OIL\PETROLATUM
     Indication: DRY SKIN
     Route: 065
     Dates: start: 20190719
  23. LARGACTIL [CHLORPROMAZINE] [Concomitant]
     Active Substance: CHLORPROMAZINE
     Indication: HICCUPS
     Route: 065
     Dates: start: 20191015, end: 20191016
  24. DUPHALAC [Concomitant]
     Active Substance: LACTULOSE
     Indication: CONSTIPATION
     Route: 065
     Dates: start: 20191017
  25. SPASFON [PHLOROGLUCINOL;TRIMETHYLPHLOROGLUCINOL] [Concomitant]
     Active Substance: PHLOROGLUCINOL\1,3,5-TRIMETHOXYBENZENE
     Indication: ABDOMINAL PAIN
     Route: 065
     Dates: start: 20191016

REACTIONS (1)
  - Pancreatitis [Not Recovered/Not Resolved]

NARRATIVE: CASE EVENT DATE: 20191015
